FAERS Safety Report 23509396 (Version 2)
Quarter: 2024Q2

REPORT INFORMATION
  Report Type: Other
  Country: GB (occurrence: GB)
  Receive Date: 20240210
  Receipt Date: 20240401
  Transmission Date: 20240716
  Serious: Yes (Other)
  Sender: FDA-Public Use
  Company Number: GB-MACLEODS PHARMA EU LTD-MAC2024045777

PATIENT

DRUGS (3)
  1. SILDENAFIL [Suspect]
     Active Substance: SILDENAFIL
     Indication: Erectile dysfunction
     Dosage: UNK
     Route: 065
     Dates: start: 2012
  2. SILDENAFIL [Suspect]
     Active Substance: SILDENAFIL
     Dosage: 50 MILLIGRAM (PC: 18901, SN: AMAT3HDD7099, BN: BSJ2206A)
     Route: 065
     Dates: start: 20231103
  3. SILDENAFIL [Suspect]
     Active Substance: SILDENAFIL
     Dosage: 100 MILLIGRAM
     Route: 065

REACTIONS (4)
  - Arthralgia [Recovered/Resolved]
  - Pain in extremity [Unknown]
  - Dizziness [Recovered/Resolved]
  - Product substitution issue [Unknown]
